FAERS Safety Report 13783388 (Version 1)
Quarter: 2017Q3

REPORT INFORMATION
  Report Type: Spontaneous
  Country: FR (occurrence: FR)
  Receive Date: 20170724
  Receipt Date: 20170724
  Transmission Date: 20171127
  Serious: Yes (Hospitalization, Other)
  Sender: FDA-Public Use
  Company Number: FR-PFIZER INC-2017310607

PATIENT
  Age: 86 Year
  Sex: Male

DRUGS (5)
  1. CARBOCISTEINE [Suspect]
     Active Substance: CARBOCYSTEINE
     Dosage: 1 DF, 3X/DAY
     Route: 048
     Dates: start: 20170423, end: 20170626
  2. KARDEGIC [Concomitant]
     Active Substance: ASPIRIN LYSINE
     Dosage: UNK
  3. SERESTA [Suspect]
     Active Substance: OXAZEPAM
     Indication: ANXIETY
     Dosage: 50 MG, 1X/DAY DAILY
     Route: 048
     Dates: end: 20170626
  4. EFFERALGAN [Suspect]
     Active Substance: ACETAMINOPHEN
     Dosage: 1 G, 3X/DAY
     Route: 048
     Dates: end: 20170626
  5. TAHOR [Suspect]
     Active Substance: ATORVASTATIN CALCIUM
     Indication: HYPERCHOLESTEROLAEMIA
     Dosage: 20 MG, 1X/DAY DAILY
     Route: 048
     Dates: end: 20170626

REACTIONS (2)
  - Fall [Recovered/Resolved]
  - Rhabdomyolysis [Recovering/Resolving]

NARRATIVE: CASE EVENT DATE: 20170625
